FAERS Safety Report 23336089 (Version 1)
Quarter: 2023Q4

REPORT INFORMATION
  Report Type: Report from Study
  Country: US (occurrence: US)
  Receive Date: 20231225
  Receipt Date: 20231225
  Transmission Date: 20240110
  Serious: Yes (Hospitalization)
  Sender: FDA-Public Use
  Company Number: US-JNJFOC-20231263555

PATIENT
  Age: 55 Year
  Sex: Male

DRUGS (2)
  1. TREMFYA [Suspect]
     Active Substance: GUSELKUMAB
     Indication: Psoriatic arthropathy
     Dosage: 100 MG AT WEEK 0 ON 20-FEB-2023, THEN AT WEEK 4 AND THEN 1 TIME EVERY 8 WEEKS
     Route: 058
     Dates: start: 20230220
  2. TREMFYA [Suspect]
     Active Substance: GUSELKUMAB
     Indication: Ankylosing spondylitis

REACTIONS (1)
  - Influenza [Unknown]

NARRATIVE: CASE EVENT DATE: 20231201
